FAERS Safety Report 17599602 (Version 1)
Quarter: 2020Q1

REPORT INFORMATION
  Report Type: Spontaneous
  Country: US (occurrence: US)
  Receive Date: 20200330
  Receipt Date: 20200330
  Transmission Date: 20200409
  Serious: Yes (Death, Life-Threatening, Hospitalization, Other)
  Sender: FDA-Public Use
  Company Number: US-MICRO LABS LIMITED-ML2020-00912

PATIENT
  Age: 52 Year
  Sex: Female

DRUGS (24)
  1. CLOBAZAM. [Suspect]
     Active Substance: CLOBAZAM
     Indication: SEIZURE
  2. PHENOBARBITAL. [Suspect]
     Active Substance: PHENOBARBITAL
  3. OXCARBAZEPINE. [Suspect]
     Active Substance: OXCARBAZEPINE
  4. FELBAMATE. [Suspect]
     Active Substance: FELBAMATE
  5. LACOSAMIDE. [Suspect]
     Active Substance: LACOSAMIDE
  6. DIAZEPAM. [Suspect]
     Active Substance: DIAZEPAM
  7. SENNA [Concomitant]
     Active Substance: SENNA LEAF\SENNOSIDES\SENNOSIDES A AND B
  8. MULTIVITAMINS [Concomitant]
     Active Substance: VITAMINS
  9. FLUOXETINE [Concomitant]
     Active Substance: FLUOXETINE HYDROCHLORIDE
  10. NORTRIPTYLINE [Concomitant]
     Active Substance: NORTRIPTYLINE
  11. PRAZOSIN. [Concomitant]
     Active Substance: PRAZOSIN
  12. QUETIAPINE. [Concomitant]
     Active Substance: QUETIAPINE
  13. NOREPINEPHRINE. [Concomitant]
     Active Substance: NOREPINEPHRINE
     Indication: MEAN ARTERIAL PRESSURE
  14. LEVETIRACETAM. [Suspect]
     Active Substance: LEVETIRACETAM
     Indication: SEIZURE
  15. MIDAZOLAM. [Suspect]
     Active Substance: MIDAZOLAM
     Route: 042
  16. VALPROIC ACID. [Suspect]
     Active Substance: VALPROIC ACID
     Indication: SEIZURE
  17. VANCOMYCIN [Concomitant]
     Active Substance: VANCOMYCIN
     Route: 042
  18. POLYETHYLENE GLYCOL [Concomitant]
     Active Substance: POLYETHYLENE GLYCOLS
  19. LORAZEPAM. [Suspect]
     Active Substance: LORAZEPAM
  20. PROPOFOL. [Suspect]
     Active Substance: PROPOFOL
     Route: 042
  21. PIPERACILLIN/TAZOBACTAM [Concomitant]
     Active Substance: PIPERACILLIN SODIUM\TAZOBACTAM SODIUM
     Route: 042
  22. PHENYTOIN. [Suspect]
     Active Substance: PHENYTOIN
     Indication: SEIZURE
  23. FOLIC ACID. [Concomitant]
     Active Substance: FOLIC ACID
  24. PHENOBARBITAL. [Suspect]
     Active Substance: PHENOBARBITAL
     Dosage: STOPPED
     Route: 042

REACTIONS (5)
  - Electrocardiogram QRS complex prolonged [Fatal]
  - Electrocardiogram ST segment elevation [Fatal]
  - Atrioventricular block first degree [Fatal]
  - Toxicity to various agents [Fatal]
  - Cardiotoxicity [Fatal]
